FAERS Safety Report 7297493-1 (Version None)
Quarter: 2011Q1

REPORT INFORMATION
  Report Type: 
  Country: None (occurrence: None)
  Receive Date: 20110204
  Receipt Date: 20110201
  Transmission Date: 20110831
  Serious: Yes (Other)
  Sender: FDA-Public Use
  Company Number: 2011SP004784

PATIENT
  Age: 72 Year
  Sex: Female

DRUGS (6)
  1. REMERON [Suspect]
     Indication: PRODUCT USED FOR UNKNOWN INDICATION
     Dosage: 7.5 MG;ONCE;PO
     Route: 048
  2. CLINDAMYCIN [Concomitant]
  3. LOVENOX [Concomitant]
  4. SYNTHROID [Concomitant]
  5. CIPROFLOXACIN [Concomitant]
  6. MORPHINE [Concomitant]

REACTIONS (3)
  - BLOOD THYROID STIMULATING HORMONE INCREASED [None]
  - VITAMIN B12 DEFICIENCY [None]
  - GRAND MAL CONVULSION [None]
